FAERS Safety Report 17267991 (Version 1)
Quarter: 2020Q1

REPORT INFORMATION
  Report Type: Spontaneous
  Country: US (occurrence: US)
  Receive Date: 20191221
  Receipt Date: 20191221
  Transmission Date: 20200409
  Serious: No
  Sender: FDA-Public Use
  Company Number: None

PATIENT
  Age: 22 Year
  Sex: Female

DRUGS (1)
  1. MYCOPHENOLIC TAB 360MG DR [Suspect]
     Active Substance: MYCOPHENOLIC ACID
     Indication: ANTI-GLOMERULAR BASEMENT MEMBRANE DISEASE
     Route: 048
     Dates: start: 201808

REACTIONS (1)
  - Off label use [None]

NARRATIVE: CASE EVENT DATE: 20191221
